FAERS Safety Report 17859197 (Version 2)
Quarter: 2020Q3

REPORT INFORMATION
  Report Type: Spontaneous
  Country: IT (occurrence: IT)
  Receive Date: 20200604
  Receipt Date: 20200807
  Transmission Date: 20201103
  Serious: Yes (Hospitalization)
  Sender: FDA-Public Use
  Company Number: IT-TEVA-2020-IT-1243302

PATIENT
  Age: 54 Year
  Sex: Female

DRUGS (7)
  1. PLAQUENIL [Suspect]
     Active Substance: HYDROXYCHLOROQUINE SULFATE
     Indication: CORONAVIRUS INFECTION
     Dosage: 2 DOSAGE FORMS
     Route: 048
     Dates: start: 20200403, end: 20200406
  2. DARUNAVIR [Suspect]
     Active Substance: DARUNAVIR
     Indication: CORONAVIRUS INFECTION
     Dosage: 800 MG
     Route: 048
     Dates: start: 20200405, end: 20200411
  3. RITONAVIR SANDOZ [Suspect]
     Active Substance: RITONAVIR
     Indication: CORONAVIRUS INFECTION
     Dosage: 1 DOSAGE FORMS
     Route: 048
     Dates: start: 20200405, end: 20200411
  4. CLEXANE [Suspect]
     Active Substance: ENOXAPARIN SODIUM
     Indication: THROMBOSIS PROPHYLAXIS
     Dosage: 1 DOSAGE FORMS
     Route: 058
     Dates: start: 20200403, end: 20200421
  5. INSULIN [Concomitant]
     Active Substance: INSULIN NOS
     Indication: DIABETES MELLITUS
  6. TAZOCIN 4 G/0,5 G POLVERE PER SOLUZIONE PER INFUSIONE [Suspect]
     Active Substance: PIPERACILLIN SODIUM\TAZOBACTAM SODIUM
     Indication: CORONAVIRUS INFECTION
     Dosage: 4 GRAM
     Dates: start: 20200407, end: 20200414
  7. DEPAKIN CHRONO 300 MG COMPRESSE A RILASCIO PROLUNGATO [Concomitant]
     Active Substance: VALPROIC ACID
     Indication: EPILEPSY

REACTIONS (6)
  - Skin exfoliation [Recovering/Resolving]
  - Dermatitis bullous [Recovering/Resolving]
  - Acute generalised exanthematous pustulosis [Recovering/Resolving]
  - Face oedema [Recovering/Resolving]
  - Localised oedema [Recovering/Resolving]
  - Off label use [Recovering/Resolving]

NARRATIVE: CASE EVENT DATE: 20200415
